FAERS Safety Report 17180130 (Version 1)
Quarter: 2019Q4

REPORT INFORMATION
  Report Type: Other
  Country: GB (occurrence: GB)
  Receive Date: 20191219
  Receipt Date: 20191219
  Transmission Date: 20200122
  Serious: Yes (Other)
  Sender: FDA-Public Use
  Company Number: GB-GLENMARK PHARMACEUTICALS-2019GMK044924

PATIENT

DRUGS (2)
  1. MONTELUKAST SODIUM. [Suspect]
     Active Substance: MONTELUKAST SODIUM
     Indication: ASTHMA
     Dosage: 5 MG, UNK
     Route: 048
     Dates: start: 2017, end: 201909
  2. VENTOLIN [Concomitant]
     Active Substance: ALBUTEROL SULFATE
     Indication: PRODUCT USED FOR UNKNOWN INDICATION
     Dosage: UNK
     Route: 065

REACTIONS (5)
  - Depression [Recovered/Resolved]
  - Headache [Recovered/Resolved]
  - Nightmare [Recovered/Resolved]
  - Aggression [Recovered/Resolved]
  - Pain in extremity [Recovered/Resolved]

NARRATIVE: CASE EVENT DATE: 2017
